FAERS Safety Report 8885220 (Version 1)
Quarter: 2012Q4

REPORT INFORMATION
  Report Type: 
  Country: ES (occurrence: ES)
  Receive Date: 20121105
  Receipt Date: 20121105
  Transmission Date: 20130627
  Serious: Yes (Other)
  Sender: FDA-Public Use
  Company Number: ES-PAR PHARMACEUTICAL, INC-2012SCPR004683

PATIENT

DRUGS (2)
  1. HYDROXYUREA [Suspect]
     Indication: POLYCYTHAEMIA VERA
     Dosage: 1.5 g, / day
     Route: 065
  2. HYDROXYUREA [Suspect]
     Dosage: 2 g, / day
     Route: 065

REACTIONS (5)
  - Scleroderma [Recovered/Resolved]
  - Squamous cell carcinoma [Recovered/Resolved]
  - Dermatomyositis [Recovered/Resolved]
  - Hyperkeratosis [Recovered/Resolved]
  - Essential thrombocythaemia [Unknown]
